FAERS Safety Report 6946419-6 (Version None)
Quarter: 2010Q3

REPORT INFORMATION
  Report Type: 
  Country: None (occurrence: None)
  Receive Date: 20100824
  Receipt Date: 20100812
  Transmission Date: 20110219
  Serious: Yes (Life-Threatening, Hospitalization)
  Sender: FDA-Public Use
  Company Number: GER/USA/10/0015240

PATIENT
  Age: 74 Year
  Sex: Female

DRUGS (4)
  1. CITALOPRAM HYDROBROMIDE [Suspect]
     Indication: PRODUCT USED FOR UNKNOWN INDICATION
  2. CARVEDILOL [Suspect]
     Indication: PRODUCT USED FOR UNKNOWN INDICATION
  3. ZOFRAN [Suspect]
     Indication: NAUSEA
     Dosage: INTRAVENOUS
     Route: 042
  4. AMIODARONE HCL [Suspect]
     Indication: VENTRICULAR TACHYCARDIA

REACTIONS (10)
  - ANXIETY [None]
  - ATRIOVENTRICULAR BLOCK FIRST DEGREE [None]
  - HYPOKALAEMIA [None]
  - HYPOMAGNESAEMIA [None]
  - LONG QT SYNDROME [None]
  - NAUSEA [None]
  - PAIN [None]
  - SINUS BRADYCARDIA [None]
  - TORSADE DE POINTES [None]
  - VENTRICULAR TACHYCARDIA [None]
